FAERS Safety Report 25360830 (Version 1)
Quarter: 2025Q2

REPORT INFORMATION
  Report Type: Spontaneous
  Country: US (occurrence: US)
  Receive Date: 20250527
  Receipt Date: 20250527
  Transmission Date: 20250717
  Serious: Yes (Other)
  Sender: TEVA
  Company Number: US-TEVA-VS-3333921

PATIENT

DRUGS (1)
  1. URSODIOL [Suspect]
     Active Substance: URSODIOL
     Indication: Product used for unknown indication
     Route: 065

REACTIONS (1)
  - Fibrodysplasia ossificans progressiva [Recovering/Resolving]
